FAERS Safety Report 7418086-9 (Version None)
Quarter: 2011Q2

REPORT INFORMATION
  Report Type: 
  Country: None (occurrence: None)
  Receive Date: 20110415
  Receipt Date: 20110411
  Transmission Date: 20111010
  Serious: Yes (Other)
  Sender: FDA-Public Use
  Company Number: IT-ROCHE-770871

PATIENT
  Sex: Female

DRUGS (6)
  1. TRIATEC [Concomitant]
  2. LASIX [Concomitant]
  3. ASPIRIN [Concomitant]
  4. DILATREND [Concomitant]
  5. LANOXIN [Concomitant]
  6. CEFTRIAXONE SODIUM [Suspect]
     Route: 065
     Dates: start: 20110328, end: 20110328

REACTIONS (2)
  - DYSPNOEA [None]
  - FACE OEDEMA [None]
